FAERS Safety Report 4482044-7 (Version None)
Quarter: 2004Q4

REPORT INFORMATION
  Report Type: 
  Country: None (occurrence: None)
  Receive Date: 20041020
  Receipt Date: 20041020
  Transmission Date: 20050328
  Serious: Yes (Hospitalization, Disabling)
  Sender: FDA-Public Use
  Company Number: None

PATIENT
  Age: 35 Year
  Sex: Male
  Weight: 79.3795 kg

DRUGS (7)
  1. TRAZODONE HCL [Suspect]
     Indication: INSOMNIA
     Dosage: 50 MG 1-2 TABLETS ORAL
     Route: 048
     Dates: start: 20041010, end: 20041010
  2. XANAX [Concomitant]
  3. INSULIN [Concomitant]
  4. PANCREATIC ENZYMES [Concomitant]
  5. PREDNISONE [Concomitant]
  6. VICODIN [Concomitant]
  7. MS CONTIN [Concomitant]

REACTIONS (1)
  - PRIAPISM [None]
